FAERS Safety Report 7271082-7 (Version None)
Quarter: 2011Q1

REPORT INFORMATION
  Report Type: 
  Country: None (occurrence: None)
  Receive Date: 20110202
  Receipt Date: 20110121
  Transmission Date: 20110831
  Serious: Yes (Other)
  Sender: FDA-Public Use
  Company Number: BR-PFIZER INC-2010044549

PATIENT
  Age: 59 Year
  Sex: Male
  Weight: 73 kg

DRUGS (5)
  1. XALATAN [Suspect]
     Indication: GLAUCOMA
     Route: 047
  2. TIMOLOL MALEATE [Suspect]
     Dosage: UNK
     Route: 047
     Dates: start: 20110121
  3. XALATAN [Suspect]
     Indication: GLAUCOMA
     Dosage: 3UG (1 DROP IN EACH EYE) 1X/DAY
     Route: 047
     Dates: start: 20100401
  4. ENALAPRIL MALEATE [Concomitant]
     Indication: BLOOD PRESSURE ABNORMAL
  5. ATENOLOL [Concomitant]
     Indication: TACHYCARDIA
     Dosage: 25 MG (HALF TABLET)

REACTIONS (17)
  - DEPRESSION [None]
  - SLEEP DISORDER [None]
  - HYPERAEMIA [None]
  - DYSPNOEA [None]
  - HEART RATE DECREASED [None]
  - NERVOUSNESS [None]
  - HEADACHE [None]
  - MIGRAINE [None]
  - EYELID PAIN [None]
  - ARRHYTHMIA [None]
  - FATIGUE [None]
  - BLOOD PRESSURE INCREASED [None]
  - ANXIETY [None]
  - TENSION [None]
  - INTRAOCULAR PRESSURE FLUCTUATION [None]
  - CARDIAC DISORDER [None]
  - EYE PAIN [None]
